FAERS Safety Report 8559566-2 (Version None)
Quarter: 2012Q3

REPORT INFORMATION
  Report Type: 
  Country: None (occurrence: None)
  Receive Date: 20120802
  Receipt Date: 20120723
  Transmission Date: 20120928
  Serious: Yes (Hospitalization, Other)
  Sender: FDA-Public Use
  Company Number: US-ABBOTT-12P-163-0959655-00

PATIENT
  Sex: Male
  Weight: 144.37 kg

DRUGS (12)
  1. LOSARTAN POTASSIUM [Concomitant]
     Indication: ELECTROLYTE SUBSTITUTION THERAPY
  2. CELEXA [Concomitant]
     Indication: DEPRESSION
  3. GLYBURIDE [Concomitant]
     Indication: DIABETES MELLITUS
  4. GABAPENTIN [Concomitant]
     Indication: NEUROPATHY PERIPHERAL
  5. METFORMIN HYDROCHLORIDE [Concomitant]
     Indication: DIABETES MELLITUS
  6. SPIRONOLACTONE [Concomitant]
     Indication: FLUID RETENTION
  7. METHOTREXATE SODIUM [Concomitant]
     Indication: PSORIATIC ARTHROPATHY
     Dates: end: 20120601
  8. ASPIRIN [Concomitant]
     Indication: PRODUCT USED FOR UNKNOWN INDICATION
  9. FERROUS SULFATE TAB [Concomitant]
     Indication: MINERAL SUPPLEMENTATION
  10. HUMIRA [Suspect]
     Indication: PSORIATIC ARTHROPATHY
     Dates: start: 20080101, end: 20120601
  11. FUROSEMIDE [Concomitant]
     Indication: FLUID RETENTION
  12. JENUVIA [Concomitant]
     Indication: DIABETES MELLITUS

REACTIONS (8)
  - CORONARY ARTERY OCCLUSION [None]
  - SCAR [None]
  - CORONARY ARTERY STENOSIS [None]
  - CONTUSION [None]
  - CHEST PAIN [None]
  - POST PROCEDURAL HAEMORRHAGE [None]
  - PANCREATIC DISORDER [None]
  - DEVICE OCCLUSION [None]
